FAERS Safety Report 7982390-6 (Version None)
Quarter: 2011Q4

REPORT INFORMATION
  Report Type: 
  Country: None (occurrence: None)
  Receive Date: 20111215
  Receipt Date: 20111207
  Transmission Date: 20120403
  Serious: Yes (Other)
  Sender: FDA-Public Use
  Company Number: PHEH2009US02401

PATIENT
  Sex: Female
  Weight: 70.295 kg

DRUGS (11)
  1. ZOMETA [Suspect]
     Dosage: UNK, EVERY 6 MONTHS
     Route: 042
     Dates: end: 20071201
  2. CALCIUM [Concomitant]
  3. TRICOR [Concomitant]
  4. PHENAZOPYRIDINE HCL TAB [Concomitant]
  5. DIOVAN [Concomitant]
  6. FEMARA [Concomitant]
  7. TAMOXIFEN [Concomitant]
  8. LOSARTAN POTASSIUM [Concomitant]
  9. MECLIZINE [Concomitant]
  10. PRILOSEC [Concomitant]
  11. ASPIRIN [Concomitant]

REACTIONS (71)
  - OSTEONECROSIS OF JAW [None]
  - PAIN [None]
  - DEFORMITY [None]
  - ARTHRALGIA [None]
  - BLOOD URINE PRESENT [None]
  - URINARY TRACT INFECTION [None]
  - GASTROOESOPHAGEAL REFLUX DISEASE [None]
  - ATROPHIC VULVOVAGINITIS [None]
  - CYSTITIS [None]
  - FALL [None]
  - RENAL CYST [None]
  - DYSPNOEA [None]
  - DYSPEPSIA [None]
  - CERUMEN IMPACTION [None]
  - PTERYGIUM [None]
  - DRY EYE [None]
  - LACRIMATION DECREASED [None]
  - INFECTION [None]
  - DYSPHAGIA [None]
  - RENAL FAILURE [None]
  - ENDOMETRIAL HYPERPLASIA [None]
  - PRESBYOESOPHAGUS [None]
  - BONE LOSS [None]
  - HIATUS HERNIA [None]
  - HAEMATURIA [None]
  - HAND FRACTURE [None]
  - HYDRONEPHROSIS [None]
  - ASTHENIA [None]
  - RHINITIS [None]
  - ORAL CANDIDIASIS [None]
  - OSTEOMYELITIS CHRONIC [None]
  - INTERVERTEBRAL DISC SPACE NARROWING [None]
  - CHONDROMALACIA [None]
  - DIARRHOEA [None]
  - BREAST INFECTION [None]
  - VERTIGO [None]
  - LEFT VENTRICULAR HYPERTROPHY [None]
  - DERMATITIS [None]
  - APHTHOUS STOMATITIS [None]
  - DYSKINESIA [None]
  - CERVICAL SPINAL STENOSIS [None]
  - INTERVERTEBRAL DISC DEGENERATION [None]
  - JOINT SWELLING [None]
  - IRRITABLE BOWEL SYNDROME [None]
  - PRIMARY SEQUESTRUM [None]
  - IRON DEFICIENCY ANAEMIA [None]
  - HYPERMETROPIA [None]
  - OSTEOARTHRITIS [None]
  - DIZZINESS [None]
  - ASTIGMATISM [None]
  - PLATELET COUNT INCREASED [None]
  - VASOMOTOR RHINITIS [None]
  - HYPERLIPIDAEMIA [None]
  - GASTRITIS [None]
  - POSTOPERATIVE WOUND INFECTION [None]
  - PYELONEPHRITIS [None]
  - FISTULA [None]
  - BREAST MASS [None]
  - HYPOKALAEMIA [None]
  - NODAL OSTEOARTHRITIS [None]
  - CATARACT [None]
  - CHEST PAIN [None]
  - HYPERTENSION [None]
  - SCOLIOSIS [None]
  - DYSURIA [None]
  - OSTEOPENIA [None]
  - HAEMATOMA [None]
  - VAGINITIS BACTERIAL [None]
  - PRESBYOPIA [None]
  - BLOOD UREA INCREASED [None]
  - OTITIS MEDIA [None]
